FAERS Safety Report 17812079 (Version 2)
Quarter: 2020Q4

REPORT INFORMATION
  Report Type: Spontaneous
  Country: JP (occurrence: JP)
  Receive Date: 20200521
  Receipt Date: 20201119
  Transmission Date: 20210113
  Serious: Yes (Hospitalization, Other)
  Sender: FDA-Public Use
  Company Number: JP-B.I. PHARMACEUTICALS,INC./RIDGEFIELD-2020-NB-025760

PATIENT
  Age: 68 Year
  Sex: Male
  Weight: 78 kg

DRUGS (31)
  1. EXCEGRAN [Concomitant]
     Active Substance: ZONISAMIDE
     Indication: PARKINSON^S DISEASE
     Route: 048
     Dates: end: 20200518
  2. SOLULACT [Concomitant]
     Indication: PRODUCT USED FOR UNKNOWN INDICATION
     Route: 042
  3. PRAZAXA [Suspect]
     Active Substance: DABIGATRAN ETEXILATE MESYLATE
     Indication: ATRIAL FIBRILLATION
     Route: 048
     Dates: end: 20200517
  4. PRAZAXA [Suspect]
     Active Substance: DABIGATRAN ETEXILATE MESYLATE
     Route: 048
     Dates: start: 20200507, end: 20200517
  5. DOPS [Concomitant]
     Active Substance: DROXIDOPA
     Indication: PARKINSON^S DISEASE
     Route: 048
     Dates: end: 20200518
  6. TAMBOCOR [Concomitant]
     Active Substance: FLECAINIDE ACETATE
     Indication: ARRHYTHMIA
     Route: 048
  7. NEUPRO [Concomitant]
     Active Substance: ROTIGOTINE
     Indication: PARKINSON^S DISEASE
     Route: 065
  8. CALONAL [Concomitant]
     Active Substance: ACETAMINOPHEN
     Indication: PRODUCT USED FOR UNKNOWN INDICATION
     Route: 065
  9. LOXOPROFEN SODIUM HYDRATE [Concomitant]
     Active Substance: LOXOPROFEN SODIUM DIHYDRATE
     Indication: PRODUCT USED FOR UNKNOWN INDICATION
     Route: 065
  10. SYMMETREL [Concomitant]
     Active Substance: AMANTADINE HYDROCHLORIDE
     Indication: PARKINSON^S DISEASE
     Route: 048
     Dates: end: 20200518
  11. SODIUM PICOSULFATE [Concomitant]
     Active Substance: SODIUM PICOSULFATE
     Indication: PRODUCT USED FOR UNKNOWN INDICATION
     Route: 065
  12. ALINAMIN-F [FURSULTIAMINE HYDROCHLORIDE] [Concomitant]
     Indication: PRODUCT USED FOR UNKNOWN INDICATION
     Route: 065
  13. BISOPROLOL [BISOPROLOL FUMARATE] [Concomitant]
     Active Substance: BISOPROLOL FUMARATE
     Indication: ARRHYTHMIA
     Route: 048
     Dates: end: 20200518
  14. SUMILU STICK [Concomitant]
     Active Substance: FELBINAC
     Indication: PRODUCT USED FOR UNKNOWN INDICATION
     Route: 065
  15. NAFTOPIDIL OD [Concomitant]
     Active Substance: NAFTOPIDIL
     Indication: PRODUCT USED FOR UNKNOWN INDICATION
     Route: 065
  16. NOURIAST [Concomitant]
     Active Substance: ISTRADEFYLLINE
     Indication: PARKINSON^S DISEASE
     Route: 048
     Dates: end: 20200518
  17. TAKECAB [Concomitant]
     Active Substance: VONOPRAZAN FUMARATE
     Indication: PRODUCT USED FOR UNKNOWN INDICATION
     Route: 048
  18. ZONISAMIDE. [Concomitant]
     Active Substance: ZONISAMIDE
     Indication: PRODUCT USED FOR UNKNOWN INDICATION
     Route: 065
  19. HEPARINOID [Concomitant]
     Active Substance: CHONDROITIN SULFATE (BOVINE)
     Indication: PRODUCT USED FOR UNKNOWN INDICATION
     Route: 065
  20. BFLUID [Concomitant]
     Active Substance: AMINO ACIDS\DEXTROSE\ELECTROLYTES NOS\VITAMINS
     Indication: PRODUCT USED FOR UNKNOWN INDICATION
     Route: 042
  21. VITAMEDIN [CYANOCOBALAMIN;PYRIDOXINE HYDROCHLORIDE;THIAMINE HYDROCHLOR [Concomitant]
     Indication: PRODUCT USED FOR UNKNOWN INDICATION
     Route: 042
  22. CARCOPA [Concomitant]
     Active Substance: CARBIDOPA\LEVODOPA
     Indication: PARKINSON^S DISEASE
     Route: 048
     Dates: end: 20200518
  23. MAGMITT [Concomitant]
     Active Substance: MAGNESIUM OXIDE
     Indication: PRODUCT USED FOR UNKNOWN INDICATION
     Route: 065
  24. CEFTRIAXONE NA [Concomitant]
     Active Substance: CEFTRIAXONE
     Indication: PRODUCT USED FOR UNKNOWN INDICATION
     Route: 042
  25. SEISHOKU [Concomitant]
     Active Substance: SODIUM CHLORIDE
     Indication: PRODUCT USED FOR UNKNOWN INDICATION
     Route: 042
  26. MECOBALAMIN [Concomitant]
     Active Substance: METHYLCOBALAMIN
     Indication: PARKINSON^S DISEASE
     Route: 048
     Dates: end: 20200518
  27. FURSULTIAMINE [Concomitant]
     Active Substance: FURSULTIAMINE
     Indication: PRODUCT USED FOR UNKNOWN INDICATION
     Route: 048
  28. METHYCOBAL [Concomitant]
     Active Substance: METHYLCOBALAMIN
     Indication: PRODUCT USED FOR UNKNOWN INDICATION
     Route: 065
  29. DOPACOL [Concomitant]
     Active Substance: CARBIDOPA\LEVODOPA
     Indication: PRODUCT USED FOR UNKNOWN INDICATION
     Route: 065
  30. SUNRYTHM [Concomitant]
     Active Substance: PILSICAINIDE HYDROCHLORIDE
     Indication: PRODUCT USED FOR UNKNOWN INDICATION
     Route: 065
  31. TAMSULOSIN HYDROCHLORIDE OD [Concomitant]
     Active Substance: TAMSULOSIN HYDROCHLORIDE
     Indication: BENIGN PROSTATIC HYPERPLASIA
     Route: 048

REACTIONS (7)
  - Mouth haemorrhage [Unknown]
  - Haematochezia [Unknown]
  - Haematuria [Unknown]
  - Constipation [Unknown]
  - Lumbar spinal stenosis [Unknown]
  - Colitis ischaemic [Recovered/Resolved]
  - Melaena [Recovered/Resolved]

NARRATIVE: CASE EVENT DATE: 20200420
